FAERS Safety Report 5577077-3 (Version None)
Quarter: 2007Q4

REPORT INFORMATION
  Report Type: 
  Country: None (occurrence: None)
  Receive Date: 20071228
  Receipt Date: 20071220
  Transmission Date: 20080405
  Serious: Yes (Hospitalization)
  Sender: FDA-Public Use
  Company Number: FR-BOEHRINGER INGELHEIM PHARMACEUTICALS, INC.-2007-FF-01188FF

PATIENT
  Sex: Male
  Weight: 4 kg

DRUGS (4)
  1. VIRAMUNE [Suspect]
     Indication: HIV INFECTION
     Route: 015
     Dates: end: 20071012
  2. RETROVIR [Concomitant]
     Route: 048
     Dates: start: 20071012, end: 20071123
  3. RETROVIR [Concomitant]
     Route: 015
     Dates: start: 20071012, end: 20071012
  4. TRIZIVIR [Concomitant]
     Indication: HIV INFECTION
     Route: 015
     Dates: end: 20071012

REACTIONS (2)
  - ANAEMIA MACROCYTIC [None]
  - SERUM FERRITIN INCREASED [None]
